FAERS Safety Report 20233903 (Version 2)
Quarter: 2022Q2

REPORT INFORMATION
  Report Type: Spontaneous
  Country: CA (occurrence: CA)
  Receive Date: 20211227
  Receipt Date: 20220630
  Transmission Date: 20220720
  Serious: Yes (Hospitalization, Other)
  Sender: FDA-Public Use
  Company Number: CA-SA-SAC20211224000264

PATIENT
  Age: 60 Year
  Sex: Male
  Weight: 175 kg

DRUGS (20)
  1. CLOPIDOGREL BISULFATE [Suspect]
     Active Substance: CLOPIDOGREL BISULFATE
     Indication: Percutaneous coronary intervention
     Dosage: 75 MG, QD
     Route: 048
     Dates: start: 2020
  2. CLOPIDOGREL BISULFATE [Suspect]
     Active Substance: CLOPIDOGREL BISULFATE
     Indication: Coronary artery disease
  3. LANTUS [Suspect]
     Active Substance: INSULIN GLARGINE
     Dosage: 52 U, BID
     Route: 058
     Dates: start: 20210121
  4. INSULIN ASPART [Suspect]
     Active Substance: INSULIN ASPART
     Dosage: UNK
     Route: 058
     Dates: start: 20201211
  5. ELIQUIS [Suspect]
     Active Substance: APIXABAN
     Indication: Cerebrovascular accident prophylaxis
     Dosage: 5 MG, BID
     Route: 048
     Dates: start: 2020
  6. ELIQUIS [Suspect]
     Active Substance: APIXABAN
     Indication: Atrial fibrillation
  7. ASPIRIN [Concomitant]
     Active Substance: ASPIRIN
  8. ATORVASTATIN [Concomitant]
     Active Substance: ATORVASTATIN
     Indication: Lipids abnormal
  9. CANDESARTAN [Concomitant]
     Active Substance: CANDESARTAN
     Indication: Hypertension
  10. CANDESARTAN [Concomitant]
     Active Substance: CANDESARTAN
     Indication: Cardiovascular disorder
  11. LASIX [Concomitant]
     Active Substance: FUROSEMIDE
     Route: 042
  12. LASIX [Concomitant]
     Active Substance: FUROSEMIDE
     Dosage: 60 MG, BID
     Route: 048
  13. NITROGLYCERIN [Concomitant]
     Active Substance: NITROGLYCERIN
  14. PANTOPRAZOLE [Concomitant]
     Active Substance: PANTOPRAZOLE
  15. PREDNISONE [Concomitant]
     Active Substance: PREDNISONE
  16. RANITIDINE [Concomitant]
     Active Substance: RANITIDINE
  17. SOTALOL [Concomitant]
     Active Substance: SOTALOL
     Indication: Arrhythmia
  18. TRAVOPROST [Concomitant]
     Active Substance: TRAVOPROST
  19. VITAMIN D2 + CALCIUM [CALCIUM GLUCONATE;CALCIUM PHOSPHATE;ERGOCALCIFER [Concomitant]
  20. BRINZOLAMIDE [Concomitant]
     Active Substance: BRINZOLAMIDE

REACTIONS (4)
  - Cardiac failure acute [Recovered/Resolved]
  - Coronary artery disease [Recovered/Resolved]
  - Prohormone brain natriuretic peptide increased [Recovered/Resolved]
  - Troponin increased [Recovered/Resolved]

NARRATIVE: CASE EVENT DATE: 20210209
